FAERS Safety Report 8482234-2 (Version None)
Quarter: 2012Q3

REPORT INFORMATION
  Report Type: 
  Country: None (occurrence: None)
  Receive Date: 20120702
  Receipt Date: 20120621
  Transmission Date: 20120928
  Serious: Yes (Other)
  Sender: FDA-Public Use
  Company Number: ES-SANOFI-AVENTIS-2012SA033512

PATIENT
  Age: 63 Year
  Sex: Male

DRUGS (6)
  1. CURCUMA XANTHORRHIZA AND OX BILE EXTRACT AND VITAMINS NOS AND MINERALS [Concomitant]
  2. RIFAMPIN AND ISONIAZID [Suspect]
     Indication: TUBERCULOSIS
     Dosage: DOSE: 300+150 MG 2 TABLETS IN 24 HOURS
     Route: 048
     Dates: start: 20120111, end: 20120507
  3. VENLAFAXINE HCL [Concomitant]
     Dates: start: 20120425
  4. VENLAFAXINE HCL [Concomitant]
     Dates: start: 20120409, end: 20120424
  5. RIFAMPIN AND ISONIAZID [Suspect]
     Dosage: DOSE: 300+150 MG 2 TABLETS IN 24 HOURS
     Route: 048
     Dates: start: 20120111, end: 20120507
  6. BECLOMETHASONE DIPROPIONATE [Concomitant]
     Dates: start: 20120409

REACTIONS (8)
  - SCAB [None]
  - WOUND SECRETION [None]
  - ECZEMA [None]
  - DERMATITIS HERPETIFORMIS [None]
  - DERMATITIS [None]
  - WOUND [None]
  - RASH ERYTHEMATOUS [None]
  - PRURITUS [None]
